FAERS Safety Report 13151127 (Version 2)
Quarter: 2017Q1

REPORT INFORMATION
  Report Type: Report from Study
  Country: GB (occurrence: GB)
  Receive Date: 20170125
  Receipt Date: 20170307
  Transmission Date: 20170428
  Serious: Yes (Other)
  Sender: FDA-Public Use
  Company Number: GB-UCBSA-2016045831

PATIENT
  Age: 60 Year
  Sex: Female

DRUGS (2)
  1. CERTOLIZUMAB PEGOL [Suspect]
     Active Substance: CERTOLIZUMAB PEGOL
     Indication: PSORIATIC ARTHROPATHY
     Dosage: 200 MG, EV 2 WEEKS(QOW)
     Route: 058
     Dates: start: 20161130
  2. METHOTREXATE. [Suspect]
     Active Substance: METHOTREXATE
     Indication: PRODUCT USED FOR UNKNOWN INDICATION
     Dosage: UNK

REACTIONS (9)
  - Viral infection [Unknown]
  - Lower respiratory tract infection [Unknown]
  - Dizziness [Unknown]
  - Cold sweat [Unknown]
  - Malaise [Unknown]
  - Feeling hot [Unknown]
  - Cough [Unknown]
  - Intentional product misuse [Unknown]
  - Nausea [Recovered/Resolved]

NARRATIVE: CASE EVENT DATE: 2016
